FAERS Safety Report 20199789 (Version 1)
Quarter: 2021Q4

REPORT INFORMATION
  Report Type: Spontaneous
  Country: US (occurrence: US)
  Receive Date: 20211217
  Receipt Date: 20211217
  Transmission Date: 20220303
  Serious: No
  Sender: FDA-Public Use
  Company Number: US-NOVEN PHARMACEUTICALS, INC.-2021-NOV-US003862

PATIENT
  Sex: Female

DRUGS (3)
  1. MINIVELLE [Suspect]
     Active Substance: ESTRADIOL
     Indication: Sleep disorder
     Dosage: 0.1 MG, UNKNOWN
     Route: 062
  2. MINIVELLE [Suspect]
     Active Substance: ESTRADIOL
     Indication: Palpitations
  3. MINIVELLE [Suspect]
     Active Substance: ESTRADIOL
     Indication: Hot flush

REACTIONS (2)
  - Thrombosis [Unknown]
  - Therapeutic product effect incomplete [Not Recovered/Not Resolved]
